FAERS Safety Report 11850832 (Version 1)
Quarter: 2015Q4

REPORT INFORMATION
  Report Type: Report from Study
  Country: US (occurrence: US)
  Receive Date: 20151218
  Receipt Date: 20151218
  Transmission Date: 20160305
  Serious: Yes (Death, Hospitalization)
  Sender: FDA-Public Use
  Company Number: US-ASTRAZENECA-2015SF26534

PATIENT
  Age: 4937 Week
  Sex: Female
  Weight: 59 kg

DRUGS (1)
  1. SYMBICORT [Suspect]
     Active Substance: BUDESONIDE\FORMOTEROL FUMARATE DIHYDRATE
     Indication: TOTAL LUNG CAPACITY ABNORMAL
     Dosage: 160/ 4.5, 2 PUFFS, TWO TIMES A DAY
     Route: 055

REACTIONS (6)
  - Pleural effusion [Unknown]
  - Death [Fatal]
  - Off label use [Unknown]
  - Renal impairment [Unknown]
  - Product use issue [Unknown]
  - Blood pressure abnormal [Unknown]

NARRATIVE: CASE EVENT DATE: 20151204
